FAERS Safety Report 11404312 (Version 1)
Quarter: 2015Q3

REPORT INFORMATION
  Report Type: Spontaneous
  Country: ES (occurrence: ES)
  Receive Date: 20150821
  Receipt Date: 20150821
  Transmission Date: 20151125
  Serious: Yes (Other)
  Sender: FDA-Public Use
  Company Number: ES-TEVA-585500ISR

PATIENT
  Age: 65 Year
  Sex: Female

DRUGS (1)
  1. RIBAVIRINA TEVA 200MG CAPSULAS DURAS EFG [Suspect]
     Active Substance: RIBAVIRIN
     Indication: CHRONIC HEPATITIS C
     Dosage: 1000 MILLIGRAM DAILY;
     Route: 048
     Dates: start: 201505, end: 20150709

REACTIONS (1)
  - Pancytopenia [Recovered/Resolved]

NARRATIVE: CASE EVENT DATE: 20150707
